FAERS Safety Report 15668178 (Version 1)
Quarter: 2018Q4

REPORT INFORMATION
  Report Type: Spontaneous
  Country: FR (occurrence: FR)
  Receive Date: 20181129
  Receipt Date: 20181129
  Transmission Date: 20190205
  Serious: Yes (Life-Threatening, Hospitalization)
  Sender: FDA-Public Use
  Company Number: FR-SUN PHARMACEUTICAL INDUSTRIES LTD-2018RR-192196

PATIENT
  Age: 43 Year
  Sex: Male
  Weight: 69 kg

DRUGS (1)
  1. PARACETAMOL [Suspect]
     Active Substance: ACETAMINOPHEN
     Indication: TOXICITY TO VARIOUS AGENTS
     Route: 048
     Dates: start: 20181031, end: 20181031

REACTIONS (5)
  - Intentional overdose [Recovered/Resolved]
  - Vomiting [Recovered/Resolved]
  - Analgesic drug level increased [Recovered/Resolved]
  - Hepatitis acute [Recovering/Resolving]
  - Dizziness [Recovered/Resolved]

NARRATIVE: CASE EVENT DATE: 20181031
